FAERS Safety Report 9557721 (Version 1)
Quarter: 2013Q3

REPORT INFORMATION
  Report Type: Spontaneous
  Country: US (occurrence: None)
  Receive Date: 20130724
  Receipt Date: 20130724
  Transmission Date: 20140515
  Serious: Yes (Other)
  Sender: FDA-Public Use
  Company Number: PHEH2012US016351

PATIENT
  Age: 79 Year
  Sex: Female

DRUGS (1)
  1. GLEEVEC (IMATINIB) UNKNOWN [Suspect]
     Indication: GASTRIC CANCER
     Route: 048
     Dates: start: 20120808

REACTIONS (8)
  - Herpes zoster [None]
  - Nervousness [None]
  - Malaise [None]
  - Nausea [None]
  - Vomiting [None]
  - Pruritus [None]
  - Erythema [None]
  - Rash [None]
